FAERS Safety Report 4988872-3 (Version None)
Quarter: 2006Q2

REPORT INFORMATION
  Report Type: 
  Country: None (occurrence: None)
  Receive Date: 20060502
  Receipt Date: 20060210
  Transmission Date: 20061013
  Serious: Yes (Hospitalization)
  Sender: FDA-Public Use
  Company Number: US-MERCK-0602USA03532

PATIENT
  Age: 71 Year
  Sex: Female
  Weight: 70 kg

DRUGS (3)
  1. VIOXX [Suspect]
     Indication: ARTHRITIS
     Route: 048
     Dates: start: 20040219, end: 20040401
  2. PLAVIX [Concomitant]
     Route: 048
     Dates: start: 20040401
  3. ASPIRIN [Concomitant]
     Route: 048
     Dates: start: 20030101

REACTIONS (24)
  - AORTIC ARTERIOSCLEROSIS [None]
  - ASTHENIA [None]
  - BLOOD CREATINE PHOSPHOKINASE INCREASED [None]
  - BLOOD CREATINE PHOSPHOKINASE MB INCREASED [None]
  - BRADYCARDIA [None]
  - CEREBROVASCULAR ACCIDENT [None]
  - DIVERTICULUM [None]
  - DIZZINESS [None]
  - DYSPNOEA [None]
  - EPISTAXIS [None]
  - FALL [None]
  - HYPERLIPIDAEMIA [None]
  - HYPERTENSION [None]
  - HYPERVENTILATION [None]
  - INTERMITTENT CLAUDICATION [None]
  - ISCHAEMIC STROKE [None]
  - MITRAL VALVE INCOMPETENCE [None]
  - PAIN IN EXTREMITY [None]
  - SYNCOPE [None]
  - SYNCOPE VASOVAGAL [None]
  - TACHYPNOEA [None]
  - TROPONIN INCREASED [None]
  - URINARY TRACT INFECTION [None]
  - WEIGHT DECREASED [None]
